FAERS Safety Report 6662345-4 (Version None)
Quarter: 2010Q1

REPORT INFORMATION
  Report Type: 
  Country: None (occurrence: None)
  Receive Date: 20100331
  Receipt Date: 20091029
  Transmission Date: 20100710
  Serious: No
  Sender: FDA-Public Use
  Company Number: US-ABBOTT-09P-163-0588111-00

PATIENT
  Sex: Female
  Weight: 74.456 kg

DRUGS (5)
  1. LUPRON DEPOT [Suspect]
     Indication: UTERINE LEIOMYOMA
     Route: 030
     Dates: start: 20090724, end: 20091021
  2. LUPRON DEPOT [Suspect]
     Indication: UTERINE HAEMORRHAGE
  3. IRON RE [Suspect]
     Indication: ANAEMIA
     Dates: end: 20090730
  4. NORETHINDRONE AND ETHINYL ESTRADIOL [Concomitant]
     Indication: CONTRACEPTION
     Dosage: 1/35 DOUBLE FOR 3 WEEKS, THEN DAILY
  5. VITAMIN TAB [Concomitant]
     Indication: DRUG USE FOR UNKNOWN INDICATION

REACTIONS (5)
  - HAEMOGLOBIN DECREASED [None]
  - HEADACHE [None]
  - MOOD SWINGS [None]
  - MUSCLE SPASMS [None]
  - VAGINAL HAEMORRHAGE [None]
